FAERS Safety Report 5210951-6 (Version None)
Quarter: 2007Q1

REPORT INFORMATION
  Report Type: 
  Country: None (occurrence: None)
  Receive Date: 20070117
  Receipt Date: 20070105
  Transmission Date: 20070707
  Serious: Yes (Hospitalization)
  Sender: FDA-Public Use
  Company Number: FR-PFIZER INC-2007002725

PATIENT
  Age: 8 Year
  Sex: Male

DRUGS (6)
  1. ZYVOX [Suspect]
     Indication: PYREXIA
  2. CIPROFLOXACIN [Suspect]
     Indication: PYREXIA
  3. CEFTAZIDIME [Suspect]
     Indication: PYREXIA
     Route: 042
  4. PIPERACILLIN AND TAZOBACTAM [Suspect]
     Indication: PYREXIA
     Route: 042
  5. AMIKACIN [Suspect]
     Indication: PYREXIA
     Route: 042
  6. VANCOMYCIN [Suspect]
     Indication: PYREXIA
     Route: 042

REACTIONS (3)
  - PYREXIA [None]
  - SERUM SICKNESS [None]
  - TOXIC SKIN ERUPTION [None]
